FAERS Safety Report 4662071-7 (Version None)
Quarter: 2005Q2

REPORT INFORMATION
  Report Type: 
  Country: None (occurrence: None)
  Receive Date: 20050516
  Receipt Date: 20050506
  Transmission Date: 20051028
  Serious: Yes (Hospitalization)
  Sender: FDA-Public Use
  Company Number: US-JNJFOC-20050401707

PATIENT
  Sex: Female
  Weight: 94.35 kg

DRUGS (7)
  1. REMICADE [Suspect]
     Route: 042
  2. REMICADE [Suspect]
     Route: 042
  3. REMICADE [Suspect]
     Indication: RHEUMATOID ARTHRITIS
     Route: 042
  4. INH [Concomitant]
     Indication: TUBERCULIN TEST POSITIVE
  5. PYRIDOXINE HCL [Concomitant]
     Indication: TUBERCULIN TEST POSITIVE
  6. PREDNISONE TAB [Concomitant]
     Indication: RHEUMATOID ARTHRITIS
  7. CLARITIN [Concomitant]
     Indication: PREMEDICATION

REACTIONS (1)
  - ATRIAL FIBRILLATION [None]
